FAERS Safety Report 5412781-9 (Version None)
Quarter: 2007Q3

REPORT INFORMATION
  Report Type: 
  Country: None (occurrence: None)
  Receive Date: 20070713
  Receipt Date: 20070322
  Transmission Date: 20080115
  Serious: No
  Sender: FDA-Public Use
  Company Number: 2007SP001047

PATIENT
  Age: 40 Year
  Sex: Male
  Weight: 95.709 kg

DRUGS (5)
  1. LUNESTA [Suspect]
     Indication: INSOMNIA
     Dosage: 2 MG; ORAL
     Route: 048
     Dates: start: 20070101, end: 20070201
  2. ATENOLOL [Concomitant]
  3. CLONAZEPAM [Concomitant]
  4. SERTRALINE [Concomitant]
  5. TESTIM [Concomitant]

REACTIONS (3)
  - DRUG INEFFECTIVE [None]
  - DYSGEUSIA [None]
  - INSOMNIA [None]
